FAERS Safety Report 12280619 (Version 1)
Quarter: 2016Q2

REPORT INFORMATION
  Report Type: Spontaneous
  Country: US (occurrence: None)
  Receive Date: 20160418
  Receipt Date: 20160418
  Transmission Date: 20160815
  Serious: No
  Sender: FDA-Public Use
  Company Number: None

PATIENT
  Age: 7 Year
  Sex: Male
  Weight: 27.22 kg

DRUGS (1)
  1. VYVANSE [Suspect]
     Active Substance: LISDEXAMFETAMINE DIMESYLATE
     Indication: PRODUCT USED FOR UNKNOWN INDICATION
     Dosage: 30 CAPSULES IN THE MORNING TAKEN BY MOUTH
     Route: 048
     Dates: start: 20160404, end: 20160415

REACTIONS (5)
  - Drug ineffective [None]
  - Product quality issue [None]
  - Educational problem [None]
  - Product dosage form issue [None]
  - Abnormal behaviour [None]

NARRATIVE: CASE EVENT DATE: 20160404
